FAERS Safety Report 8519421 (Version 3)
Quarter: 2020Q3

REPORT INFORMATION
  Report Type: Report from Study
  Country: US (occurrence: US)
  Receive Date: 20120418
  Receipt Date: 20120615
  Transmission Date: 20201105
  Serious: Yes (Other)
  Sender: FDA-Public Use
  Company Number: US-JNJFOC-20120406553

PATIENT
  Age: 57 Year
  Sex: Female
  Weight: 76.2 kg

DRUGS (4)
  1. CISAPRIDE [Suspect]
     Active Substance: CISAPRIDE
     Route: 048
  2. CISAPRIDE [Suspect]
     Active Substance: CISAPRIDE
     Route: 048
  3. CISAPRIDE [Suspect]
     Active Substance: CISAPRIDE
     Indication: GASTROINTESTINAL MOTILITY DISORDER
     Route: 048
  4. CISAPRIDE [Suspect]
     Active Substance: CISAPRIDE
     Indication: GASTROOESOPHAGEAL REFLUX DISEASE
     Route: 048

REACTIONS (1)
  - Electrocardiogram QT prolonged [Recovered/Resolved]

NARRATIVE: CASE EVENT DATE: 20120330
